FAERS Safety Report 16916568 (Version 2)
Quarter: 2019Q4

REPORT INFORMATION
  Report Type: Report from Study
  Country: US (occurrence: US)
  Receive Date: 20191014
  Receipt Date: 20191017
  Transmission Date: 20200122
  Serious: Yes (Other)
  Sender: FDA-Public Use
  Company Number: US-BIOGEN-2019BI00793650

PATIENT
  Age: 30 Year
  Sex: Female

DRUGS (2)
  1. TECFIDERA [Suspect]
     Active Substance: DIMETHYL FUMARATE
     Indication: MULTIPLE SCLEROSIS
     Route: 065
  2. TECFIDERA [Suspect]
     Active Substance: DIMETHYL FUMARATE
     Route: 048
     Dates: start: 20190728

REACTIONS (7)
  - Feeling abnormal [Unknown]
  - Dyspnoea [Unknown]
  - Seizure [Unknown]
  - Chest discomfort [Unknown]
  - Anxiety [Unknown]
  - Incoherent [Unknown]
  - Muscular weakness [Unknown]

NARRATIVE: CASE EVENT DATE: 20191005
